FAERS Safety Report 9155306 (Version 1)
Quarter: 2013Q1

REPORT INFORMATION
  Report Type: Spontaneous
  Country: GB (occurrence: None)
  Receive Date: 20130208
  Receipt Date: 20130208
  Transmission Date: 20140127
  Serious: Yes (Hospitalization)
  Sender: FDA-Public Use
  Company Number: 2012AP002148

PATIENT
  Age: 84 Year
  Sex: Male

DRUGS (4)
  1. RAMIPRIL (RAMIPRIL) [Suspect]
     Indication: PRODUCT USED FOR UNKNOWN INDICATION
     Dates: start: 201110, end: 20120625
  2. FOLIC ACID (FOLIC ACID) [Concomitant]
  3. LANSOPRAZOLE (LANSOPRAZOLE) [Concomitant]
  4. MACROGOL (MACROGOL) [Concomitant]

REACTIONS (3)
  - Renal failure acute [None]
  - Abdominal pain [None]
  - Dehydration [None]
